FAERS Safety Report 4409761-9 (Version None)
Quarter: 2004Q3

REPORT INFORMATION
  Report Type: 
  Country: None (occurrence: None)
  Receive Date: 20040723
  Receipt Date: 20040712
  Transmission Date: 20050211
  Serious: No
  Sender: FDA-Public Use
  Company Number: 04P-163-0266911-00

PATIENT
  Age: 46 Year
  Sex: Male

DRUGS (6)
  1. NORVIR [Suspect]
     Indication: HIV INFECTION
     Dosage: 250 MG, PER ORAL
     Route: 048
     Dates: start: 20040421, end: 20040616
  2. TIPRANAVIR [Concomitant]
  3. DAPSONE [Concomitant]
  4. LEVOTHYROXINE SODIUM [Concomitant]
  5. T-20 (ENFUVIRTIDE) [Concomitant]
  6. EFAVIRENZ [Concomitant]

REACTIONS (4)
  - DISEASE RECURRENCE [None]
  - HEPATITIS B [None]
  - IMMUNE RECONSTITUTION SYNDROME [None]
  - LYMPHADENOPATHY [None]
